FAERS Safety Report 17678672 (Version 4)
Quarter: 2022Q2

REPORT INFORMATION
  Report Type: Report from Study
  Country: US (occurrence: None)
  Receive Date: 20200417
  Receipt Date: 20220609
  Transmission Date: 20220721
  Serious: Yes (Death, Other)
  Sender: FDA-Public Use
  Company Number: US-ROCHE-2584103

PATIENT
  Age: 58 Year
  Sex: Female
  Weight: 124.85 kg

DRUGS (2)
  1. ATEZOLIZUMAB [Suspect]
     Active Substance: ATEZOLIZUMAB
     Indication: Triple negative breast cancer
     Route: 041
     Dates: start: 20200323, end: 20200323
  2. CARBOPLATIN [Suspect]
     Active Substance: CARBOPLATIN
     Indication: Triple negative breast cancer
     Dosage: 6AUC
     Route: 042
     Dates: start: 20200323, end: 20200323

REACTIONS (4)
  - Cardiac arrest [Fatal]
  - Encephalopathy [Fatal]
  - Lactic acidosis [Unknown]
  - Cardiogenic shock [Fatal]

NARRATIVE: CASE EVENT DATE: 20200402
